FAERS Safety Report 9173926 (Version 1)
Quarter: 2013Q1

REPORT INFORMATION
  Report Type: Spontaneous
  Country: US (occurrence: None)
  Receive Date: 20130314
  Receipt Date: 20130314
  Transmission Date: 20140127
  Serious: No
  Sender: FDA-Public Use
  Company Number: IMP_06619_2013

PATIENT
  Age: 65 Year
  Sex: Female

DRUGS (2)
  1. PROMETHAZINE [Suspect]
     Indication: NAUSEA
     Dosage: 25MG, AS REQURIED TWO TO THREE TIMES A DAY
  2. DIPHENHYDRAMINE [Suspect]
     Indication: PRODUCT USED FOR UNKNOWN INDICATION
     Dosage: DF  INTRAVENOUS

REACTIONS (5)
  - Restless legs syndrome [None]
  - Condition aggravated [None]
  - Dystonia [None]
  - Discomfort [None]
  - Drug interaction [None]
